FAERS Safety Report 5627479-1 (Version None)
Quarter: 2008Q1

REPORT INFORMATION
  Report Type: 
  Country: None (occurrence: None)
  Receive Date: 20080215
  Receipt Date: 20080207
  Transmission Date: 20080703
  Serious: Yes (Other)
  Sender: FDA-Public Use
  Company Number: JP-BRISTOL-MYERS SQUIBB COMPANY-14076491

PATIENT
  Age: 68 Year
  Sex: Male

DRUGS (8)
  1. ABILIFY [Suspect]
     Indication: SCHIZOPHRENIA
     Route: 048
     Dates: start: 20071106, end: 20080204
  2. LAC-B [Concomitant]
     Dates: end: 20080204
  3. MAGNESIUM OXIDE [Concomitant]
     Dates: end: 20080204
  4. DORAL [Concomitant]
     Dates: end: 20080204
  5. SENNOSIDE [Concomitant]
     Dates: end: 20080204
  6. ALOSENN [Concomitant]
     Dates: end: 20080204
  7. ALOSENN [Concomitant]
     Dates: start: 20060706, end: 20080204
  8. BROTIZOLAM [Concomitant]

REACTIONS (3)
  - CONSTIPATION [None]
  - INSOMNIA [None]
  - WATER INTOXICATION [None]
